FAERS Safety Report 24210858 (Version 1)
Quarter: 2024Q3

REPORT INFORMATION
  Report Type: Spontaneous
  Country: US (occurrence: None)
  Receive Date: 20240813
  Receipt Date: 20240813
  Transmission Date: 20241017
  Serious: No
  Sender: Public
  Company Number: None

PATIENT
  Age: 10 Year
  Sex: Female

DRUGS (13)
  1. VIGABATRIN [Suspect]
     Active Substance: VIGABATRIN
  2. VALTOCO [Concomitant]
  3. KEPPRA [Concomitant]
     Active Substance: LEVETIRACETAM
  4. RUFINAMIDE [Concomitant]
     Active Substance: RUFINAMIDE
  5. DIASTAT PEDIATRIC [Concomitant]
  6. ALBUTEROL SULFATE [Concomitant]
     Active Substance: ALBUTEROL SULFATE
  7. TRIAMCINOLONE [Concomitant]
  8. ACETONIDE [Concomitant]
  9. CERAVE HYDRATING FACIAL C [Concomitant]
  10. EUCRISA [Concomitant]
     Active Substance: CRISABOROLE
  11. MUPIROCIN [Concomitant]
  12. FYCOMPA [Concomitant]
  13. LEVOCETIRIZINE DIHYDROCHL [Concomitant]

REACTIONS (2)
  - Hospitalisation [None]
  - Product use issue [None]

NARRATIVE: CASE EVENT DATE: 20240812
